FAERS Safety Report 16529317 (Version 6)
Quarter: 2020Q3

REPORT INFORMATION
  Report Type: Report from Study
  Country: JP (occurrence: JP)
  Receive Date: 20190704
  Receipt Date: 20200914
  Transmission Date: 20201102
  Serious: Yes (Life-Threatening, Hospitalization, Other)
  Sender: FDA-Public Use
  Company Number: PHJP2019JP008138

PATIENT
  Age: 74 Year
  Sex: Female

DRUGS (2)
  1. TAFINLAR [Suspect]
     Active Substance: DABRAFENIB MESYLATE
     Indication: NON-SMALL CELL LUNG CANCER STAGE IV
     Dosage: 300 MG, UNK
     Route: 048
     Dates: start: 20180705, end: 20190129
  2. MEKINIST [Suspect]
     Active Substance: TRAMETINIB DIMETHYL SULFOXIDE
     Indication: NON-SMALL CELL LUNG CANCER STAGE IV
     Dosage: 2 MG, UNK
     Route: 048
     Dates: start: 20180705, end: 20190129

REACTIONS (21)
  - Platelet count decreased [Recovered/Resolved]
  - C-reactive protein increased [Recovered/Resolved]
  - Pyrexia [Unknown]
  - Multiple organ dysfunction syndrome [Recovering/Resolving]
  - Asthenia [Unknown]
  - Constipation [Recovering/Resolving]
  - Infection [Recovered/Resolved]
  - Blood creatine phosphokinase increased [Recovered/Resolved]
  - Malaise [Unknown]
  - Left ventricular dysfunction [Unknown]
  - Hyperglycaemia [Recovering/Resolving]
  - Pruritus [Recovered/Resolved]
  - Coagulation time prolonged [Unknown]
  - Decreased appetite [Unknown]
  - Rhabdomyolysis [Recovered/Resolved]
  - Diabetes mellitus [Unknown]
  - Pleural effusion [Unknown]
  - Hyperkalaemia [Recovered/Resolved]
  - Abdominal pain upper [Recovering/Resolving]
  - Disseminated intravascular coagulation [Recovered/Resolved]
  - Acute kidney injury [Recovered/Resolved]

NARRATIVE: CASE EVENT DATE: 20180904
